FAERS Safety Report 4802338-2 (Version None)
Quarter: 2005Q4

REPORT INFORMATION
  Report Type: 
  Country: None (occurrence: None)
  Receive Date: 20051014
  Receipt Date: 20040924
  Transmission Date: 20060501
  Serious: Yes (Other)
  Sender: FDA-Public Use
  Company Number: 2004057036

PATIENT
  Sex: Male

DRUGS (10)
  1. NEURONTIN [Suspect]
     Indication: NEUROPATHY PERIPHERAL
     Dosage: (3 IN 1 D), ORAL
     Route: 048
  2. FOLIC ACID [Concomitant]
  3. FUROSEMIDE [Concomitant]
  4. LOSARTAN POTASSIUM [Concomitant]
  5. SPIRONOLACTONE [Concomitant]
  6. PHENOXYMETHYL PENICILLIN [Concomitant]
  7. POTASSIUM CHLORIDE [Concomitant]
  8. WARFARIN SODIUM [Concomitant]
  9. DIGOXIN [Concomitant]
  10. RANITIDINE HYDROCHLORIDE [Concomitant]

REACTIONS (3)
  - DRUG INEFFECTIVE [None]
  - NEUROPATHY PERIPHERAL [None]
  - VISION BLURRED [None]
